FAERS Safety Report 4998935-4 (Version None)
Quarter: 2006Q2

REPORT INFORMATION
  Report Type: 
  Country: None (occurrence: None)
  Receive Date: 20060510
  Receipt Date: 20060502
  Transmission Date: 20061013
  Serious: Yes (Hospitalization)
  Sender: FDA-Public Use
  Company Number: US-MERCK-0605USA00783

PATIENT
  Age: 69 Year
  Sex: Female
  Weight: 73 kg

DRUGS (10)
  1. VIOXX [Suspect]
     Indication: SPINAL COLUMN STENOSIS
     Route: 048
     Dates: start: 20010301, end: 20040901
  2. LIPITOR [Concomitant]
     Route: 065
  3. DETROL LA [Concomitant]
     Route: 065
  4. TOPROL-XL [Concomitant]
     Route: 065
  5. NEXIUM [Concomitant]
     Route: 065
  6. MIACALCIN [Concomitant]
     Route: 065
  7. COSOPT [Concomitant]
     Route: 065
  8. ALPHAGAN [Concomitant]
     Route: 065
  9. XALATAN [Concomitant]
     Route: 065
  10. PLAVIX [Concomitant]
     Route: 065

REACTIONS (1)
  - CEREBROVASCULAR ACCIDENT [None]
